FAERS Safety Report 8162829-6 (Version None)
Quarter: 2012Q1

REPORT INFORMATION
  Report Type: 
  Country: None (occurrence: None)
  Receive Date: 20120224
  Receipt Date: 20120214
  Transmission Date: 20120608
  Serious: Yes (Hospitalization)
  Sender: FDA-Public Use
  Company Number: AU-JNJFOC-20120208281

PATIENT
  Sex: Female

DRUGS (6)
  1. FISH OIL [Concomitant]
     Dosage: 8 CAPSULES DAILY
  2. REMICADE [Suspect]
     Indication: CROHN'S DISEASE
     Route: 042
     Dates: start: 20120214
  3. REMICADE [Suspect]
     Route: 042
     Dates: start: 20101101
  4. HRT [Concomitant]
  5. AZATHIOPRINE [Concomitant]
  6. NOTEN [Concomitant]
     Dosage: 1 TABLET DAILY

REACTIONS (3)
  - LOSS OF CONSCIOUSNESS [None]
  - ARTHRALGIA [None]
  - ALCOHOL POISONING [None]
